FAERS Safety Report 9381615 (Version 1)
Quarter: 2013Q3

REPORT INFORMATION
  Report Type: Spontaneous
  Country: US (occurrence: US)
  Receive Date: 20130703
  Receipt Date: 20130703
  Transmission Date: 20140515
  Serious: No
  Sender: FDA-Public Use
  Company Number: US-BAYER-2013-081237

PATIENT
  Age: 54 Year
  Sex: Male
  Weight: 92.97 kg

DRUGS (2)
  1. ALEVE GELCAPS [Suspect]
     Dosage: TOOK FIVE OR SIX, ONCE
     Route: 048
     Dates: start: 20130626, end: 20130626
  2. METFORMIN [Concomitant]

REACTIONS (1)
  - Extra dose administered [None]
